FAERS Safety Report 8991151 (Version 1)
Quarter: 2012Q4

REPORT INFORMATION
  Report Type: Spontaneous
  Country: US (occurrence: None)
  Receive Date: 20121227
  Receipt Date: 20121227
  Transmission Date: 20130627
  Serious: Yes (Hospitalization)
  Sender: FDA-Public Use
  Company Number: None

PATIENT
  Age: 77 Year
  Sex: Female
  Weight: 52.3 kg

DRUGS (4)
  1. DECITABINE [Suspect]
     Indication: MYELODYSPLASTIC SYNDROME
     Dosage: cycle 1 day 1 8/16/2010
     Dates: start: 20100816
  2. DECITABINE [Suspect]
     Dosage: cycle 1 day 1 8/16/2010
     Dates: start: 20100816
  3. DECITABINE [Suspect]
     Indication: MYELODYSPLASTIC SYNDROME
     Dosage: cycle 2 day 1 9/13/2010
     Dates: start: 20100913
  4. DECITABINE [Suspect]
     Dosage: cycle 2 day 1 9/13/2010
     Dates: start: 20100913

REACTIONS (4)
  - Leukopenia [None]
  - Anaemia [None]
  - Pneumonia [None]
  - Neutrophil count decreased [None]
